FAERS Safety Report 18807941 (Version 4)
Quarter: 2021Q1

REPORT INFORMATION
  Report Type: Spontaneous
  Country: JP (occurrence: JP)
  Receive Date: 20210129
  Receipt Date: 20210309
  Transmission Date: 20210419
  Serious: Yes (Other)
  Sender: FDA-Public Use
  Company Number: JP-GLAXOSMITHKLINE-JP2021016425

PATIENT
  Age: 8 Year
  Sex: Male
  Weight: 24 kg

DRUGS (4)
  1. OLOPATADINE HYDROCHLORIDE OD TABLETS [Concomitant]
     Indication: RHINITIS ALLERGIC
     Dosage: 5 MG, BID
     Route: 048
     Dates: start: 20201026
  2. MONTELUKAST CHEWABLE TABLETS [Concomitant]
     Active Substance: MONTELUKAST SODIUM
     Indication: RHINITIS ALLERGIC
     Dosage: 5 MG, QD
     Route: 048
     Dates: start: 20201026
  3. ALLERMIST [Suspect]
     Active Substance: FLUTICASONE FUROATE
     Indication: RHINITIS ALLERGIC
     Dosage: 1 DF, QD
     Route: 045
     Dates: start: 20201026, end: 20210125
  4. URSODEOXYCHOLIC ACID TABLETS [Concomitant]
     Indication: BILIARY OBSTRUCTION
     Dosage: 50 MG, TID
     Route: 048

REACTIONS (3)
  - Hepatic cirrhosis [Unknown]
  - Platelet count decreased [Unknown]
  - Ascites [Unknown]

NARRATIVE: CASE EVENT DATE: 20210122
